FAERS Safety Report 10213946 (Version 1)
Quarter: 2014Q2

REPORT INFORMATION
  Report Type: Spontaneous
  Country: US (occurrence: None)
  Receive Date: 20140530
  Receipt Date: 20140530
  Transmission Date: 20141212
  Serious: Yes (Hospitalization, Other)
  Sender: FDA-Public Use
  Company Number: SYM-2014-21417

PATIENT
  Age: 24 Year
  Sex: Male

DRUGS (1)
  1. XENAZINE (TETRABENAZINE) (25 MILLIGRAM, TABLET) (TETRABENAZINE) [Suspect]
     Indication: TOURETTE^S DISORDER
     Route: 048
     Dates: start: 20120919

REACTIONS (2)
  - Dry mouth [None]
  - Musculoskeletal stiffness [None]
